FAERS Safety Report 10149293 (Version 2)
Quarter: 2014Q2

REPORT INFORMATION
  Report Type: Spontaneous
  Country: US (occurrence: US)
  Receive Date: 20140502
  Receipt Date: 20140507
  Transmission Date: 20141212
  Serious: Yes (Death, Hospitalization)
  Sender: FDA-Public Use
  Company Number: US-SA-2014SA055786

PATIENT
  Age: 61 Year
  Sex: Male

DRUGS (8)
  1. LUMIZYME [Suspect]
     Indication: GLYCOGEN STORAGE DISEASE TYPE II
     Route: 042
     Dates: start: 20140117, end: 201404
  2. ALBUTEROL [Concomitant]
  3. ALLOPURINOL [Concomitant]
  4. FLONASE [Concomitant]
  5. HEPARIN [Concomitant]
     Indication: PROPHYLAXIS
  6. IMODIUM [Concomitant]
     Indication: DIARRHOEA
  7. LOSARTAN [Concomitant]
  8. PROTONIX [Concomitant]

REACTIONS (3)
  - Respiratory tract infection [Fatal]
  - Pneumonia [Not Recovered/Not Resolved]
  - Dysphagia [Recovering/Resolving]
